FAERS Safety Report 7793229-6 (Version None)
Quarter: 2011Q4

REPORT INFORMATION
  Report Type: 
  Country: None (occurrence: None)
  Receive Date: 20111003
  Receipt Date: 20110927
  Transmission Date: 20120403
  Serious: Yes (Other)
  Sender: FDA-Public Use
  Company Number: US-PURDUE-USA-2011-0074912

PATIENT

DRUGS (3)
  1. PROTONIX [Concomitant]
     Indication: OESOPHAGEAL SPASM
     Dosage: 40 MG, BID
     Route: 048
     Dates: start: 20050101
  2. OXYCONTIN [Suspect]
     Indication: PAIN
     Dosage: 80 MG, Q4H
     Route: 048
  3. CARDIZEM [Concomitant]
     Indication: OESOPHAGEAL SPASM
     Dosage: 120 MG, BID
     Route: 048
     Dates: start: 20050101

REACTIONS (5)
  - DRUG INEFFECTIVE [None]
  - GENERAL PHYSICAL HEALTH DETERIORATION [None]
  - PAIN [None]
  - DRUG WITHDRAWAL SYNDROME [None]
  - SUICIDAL IDEATION [None]
